FAERS Safety Report 20375734 (Version 2)
Quarter: 2022Q1

REPORT INFORMATION
  Report Type: Report from Study
  Country: FI (occurrence: FI)
  Receive Date: 20220125
  Receipt Date: 20220310
  Transmission Date: 20220423
  Serious: Yes (Hospitalization, Other)
  Sender: FDA-Public Use
  Company Number: FI-MYLANLABS-2022M1006186

PATIENT
  Age: 69 Year
  Sex: Female

DRUGS (9)
  1. CLOZAPINE [Suspect]
     Active Substance: CLOZAPINE
     Indication: Major depression
     Dosage: 12.5 MILLIGRAM
     Dates: start: 20211216, end: 202112
  2. CLOZAPINE [Suspect]
     Active Substance: CLOZAPINE
     Indication: Psychotic symptom
     Dosage: 25 MILLIGRAM
     Dates: start: 202112, end: 20211228
  3. CLOZAPINE [Suspect]
     Active Substance: CLOZAPINE
     Dosage: UNK
  4. BISOPROLOL [Concomitant]
     Active Substance: BISOPROLOL
     Dosage: 1.25 MILLIGRAM, QD
  5. DULOXETINE [Concomitant]
     Active Substance: DULOXETINE
     Dosage: 60 MILLIGRAM, QD
     Dates: start: 202109
  6. POTASSIUM CHLORIDE [Concomitant]
     Active Substance: POTASSIUM CHLORIDE
     Dosage: UNK
  7. LEVOTHYROXINE [Concomitant]
     Active Substance: LEVOTHYROXINE
     Dosage: 75 MICROGRAM, QD
  8. LORAZEPAM [Concomitant]
     Active Substance: LORAZEPAM
     Dosage: 0.5 MILLIGRAM, BID
     Dates: start: 202109
  9. PANADOL [Concomitant]
     Active Substance: ACETAMINOPHEN
     Dosage: WHEN NEEDED, (PRN)

REACTIONS (5)
  - Pneumonia [Recovered/Resolved]
  - Norovirus infection [Recovered/Resolved]
  - Neutrophil count increased [Unknown]
  - Febrile infection [Unknown]
  - Off label use [Unknown]

NARRATIVE: CASE EVENT DATE: 20211201
